FAERS Safety Report 22659431 (Version 1)
Quarter: 2023Q2

REPORT INFORMATION
  Report Type: Spontaneous
  Country: US (occurrence: None)
  Receive Date: 20230629
  Receipt Date: 20230629
  Transmission Date: 20230721
  Serious: Yes (Other)
  Sender: FDA-Public Use
  Company Number: None

PATIENT

DRUGS (2)
  1. MONISTAT [Suspect]
     Active Substance: MICONAZOLE NITRATE
  2. MONISTAT 3 [Suspect]
     Active Substance: MICONAZOLE NITRATE

REACTIONS (2)
  - Product complaint [None]
  - Incorrect product administration duration [None]
